FAERS Safety Report 10866510 (Version 1)
Quarter: 2015Q1

REPORT INFORMATION
  Report Type: Spontaneous
  Country: NO (occurrence: NO)
  Receive Date: 20150225
  Receipt Date: 20150225
  Transmission Date: 20150721
  Serious: Yes (Other)
  Sender: FDA-Public Use
  Company Number: NO-ROCHE-1542152

PATIENT
  Sex: Female

DRUGS (2)
  1. RIVOTRIL [Suspect]
     Active Substance: CLONAZEPAM
     Indication: BIPOLAR DISORDER
     Route: 065
  2. SEROQUEL [Concomitant]
     Active Substance: QUETIAPINE FUMARATE

REACTIONS (7)
  - Gait disturbance [Unknown]
  - Off label use [Unknown]
  - Abasia [Unknown]
  - Dependence [Unknown]
  - Muscle spasms [Unknown]
  - Dizziness [Unknown]
  - Eating disorder [Unknown]
